FAERS Safety Report 9714039 (Version 2)
Quarter: 2015Q3

REPORT INFORMATION
  Report Type: Spontaneous
  Country: US (occurrence: US)
  Receive Date: 20131126
  Receipt Date: 20150803
  Transmission Date: 20151125
  Serious: No
  Sender: FDA-Public Use
  Company Number: US-GILEAD-2008-0018699

PATIENT
  Age: 76 Year
  Sex: Male

DRUGS (9)
  1. FUROSEMIDE. [Concomitant]
     Active Substance: FUROSEMIDE
  2. ASPIRIN. [Concomitant]
     Active Substance: ASPIRIN
  3. KLOR-CON [Concomitant]
     Active Substance: POTASSIUM CHLORIDE
  4. LETAIRIS [Suspect]
     Active Substance: AMBRISENTAN
     Indication: PULMONARY ARTERIAL HYPERTENSION
     Route: 048
     Dates: start: 20080926, end: 20081020
  5. REVATIO [Concomitant]
     Active Substance: SILDENAFIL CITRATE
  6. DIOVAN [Concomitant]
     Active Substance: VALSARTAN
  7. XOPENEX [Concomitant]
     Active Substance: LEVALBUTEROL HYDROCHLORIDE
  8. PULMICORT TURBUHALER [Concomitant]
     Active Substance: BUDESONIDE
  9. PREDNISONE. [Concomitant]
     Active Substance: PREDNISONE

REACTIONS (2)
  - Oedema peripheral [None]
  - Flushing [None]
